FAERS Safety Report 7563435-4 (Version None)
Quarter: 2011Q2

REPORT INFORMATION
  Report Type: 
  Country: None (occurrence: None)
  Receive Date: 20110622
  Receipt Date: 20110614
  Transmission Date: 20111010
  Serious: Yes (Other)
  Sender: FDA-Public Use
  Company Number: B0727489A

PATIENT
  Sex: Male

DRUGS (1)
  1. RETROVIR [Suspect]
     Indication: HIV INFECTION
     Route: 065

REACTIONS (4)
  - PANCREATITIS [None]
  - ARTERIOSCLEROSIS [None]
  - DIABETES MELLITUS [None]
  - HEPATIC NEOPLASM MALIGNANT [None]
